FAERS Safety Report 6489101-4 (Version None)
Quarter: 2009Q4

REPORT INFORMATION
  Report Type: 
  Country: None (occurrence: None)
  Receive Date: 20091210
  Receipt Date: 20091203
  Transmission Date: 20100525
  Serious: Yes (Hospitalization)
  Sender: FDA-Public Use
  Company Number: US-WYE-H08778409

PATIENT
  Sex: Female
  Weight: 77.63 kg

DRUGS (11)
  1. LAPATINIB [Suspect]
     Indication: BREAST CANCER
     Route: 048
     Dates: start: 20090211, end: 20090326
  2. LAPATINIB [Suspect]
     Route: 048
     Dates: start: 20090415
  3. FOSAMAX [Concomitant]
     Dosage: DOSE NOT SPECIFIED; FREQUENCY Q SUNDAY
     Route: 048
  4. LOTREL [Concomitant]
     Dosage: 10/20 DAILY
     Route: 048
  5. CITRUCEL [Concomitant]
     Dosage: NOT PROVIDED
     Route: 065
  6. ASCORBIC ACID [Concomitant]
     Route: 048
  7. FISH OIL [Concomitant]
     Route: 048
  8. RETINOL [Concomitant]
     Dosage: NOT PROVIDED
     Route: 065
  9. CAPECITABINE [Suspect]
     Indication: BREAST CANCER
     Route: 048
     Dates: start: 20090211, end: 20090326
  10. CAPECITABINE [Suspect]
     Route: 048
     Dates: start: 20090415
  11. VITAMIN D [Concomitant]
     Route: 048

REACTIONS (1)
  - RENAL FAILURE ACUTE [None]
